FAERS Safety Report 18250420 (Version 5)
Quarter: 2024Q2

REPORT INFORMATION
  Report Type: Report from Study
  Country: KR (occurrence: KR)
  Receive Date: 20200909
  Receipt Date: 20240531
  Transmission Date: 20240716
  Serious: Yes (Death, Hospitalization, Other)
  Sender: FDA-Public Use
  Company Number: None

PATIENT
  Age: 62 Year
  Sex: Female
  Weight: 57.2 kg

DRUGS (75)
  1. OPSUMIT [Suspect]
     Active Substance: MACITENTAN
     Indication: Pulmonary arterial hypertension
     Dosage: 10 MG, QD
     Route: 048
     Dates: start: 20171128, end: 20180524
  2. OPSUMIT [Suspect]
     Active Substance: MACITENTAN
     Indication: Pulmonary hypertension
  3. UPTRAVI [Suspect]
     Active Substance: SELEXIPAG
     Indication: Pulmonary arterial hypertension
     Dosage: 0.2 MG, BID
     Route: 048
     Dates: start: 20171222, end: 20180118
  4. UPTRAVI [Suspect]
     Active Substance: SELEXIPAG
     Dosage: 0.2 MG, QID
     Route: 048
     Dates: start: 20180119, end: 20180125
  5. UPTRAVI [Suspect]
     Active Substance: SELEXIPAG
     Dosage: 1.2 MG, QD
     Route: 048
     Dates: start: 20180126, end: 20180411
  6. UPTRAVI [Suspect]
     Active Substance: SELEXIPAG
     Dosage: 1 MG, QD
     Route: 048
     Dates: start: 20180412, end: 20180412
  7. SILDENAFIL CITRATE [Concomitant]
     Active Substance: SILDENAFIL CITRATE
     Indication: Pulmonary arterial hypertension
     Dosage: 60 MG, TID
     Route: 048
     Dates: start: 20151230, end: 20180208
  8. PHAZYME [AMYLASE;LIPASE;PROTEASE NOS;SIMETICONE] [Concomitant]
     Indication: Prophylaxis
     Dosage: 95 MG, TID
     Route: 048
     Dates: start: 20171124, end: 20180405
  9. CANRENOATE POTASSIUM [Concomitant]
     Active Substance: CANRENOATE POTASSIUM
     Dosage: 25 MG, BID
     Route: 048
     Dates: start: 20161019, end: 20180119
  10. CANRENOATE POTASSIUM [Concomitant]
     Active Substance: CANRENOATE POTASSIUM
     Dosage: 25 MG, TID
     Route: 048
     Dates: start: 20180119, end: 20180201
  11. CANRENOATE POTASSIUM [Concomitant]
     Active Substance: CANRENOATE POTASSIUM
     Dosage: 25 MG, BID
     Route: 048
     Dates: start: 20180202, end: 20180304
  12. CANRENOATE POTASSIUM [Concomitant]
     Active Substance: CANRENOATE POTASSIUM
     Dosage: 25 MG, TID
     Route: 048
     Dates: start: 20180305, end: 20180409
  13. LASIX [Concomitant]
     Active Substance: FUROSEMIDE
     Dosage: 3 DF, QD
     Route: 048
     Dates: start: 20171126, end: 20171214
  14. LASIX [Concomitant]
     Active Substance: FUROSEMIDE
     Dosage: UNK, QID
     Route: 048
     Dates: start: 20171215, end: 20180201
  15. LASIX [Concomitant]
     Active Substance: FUROSEMIDE
     Dosage: 20 MG, UNK
     Route: 042
     Dates: start: 20171215, end: 20171215
  16. LASIX [Concomitant]
     Active Substance: FUROSEMIDE
     Dosage: 20 MG, QD
     Route: 042
     Dates: start: 20180119, end: 20180119
  17. LASIX [Concomitant]
     Active Substance: FUROSEMIDE
     Dosage: 2 DF, BID
     Route: 048
     Dates: start: 20180202, end: 20180213
  18. LASIX [Concomitant]
     Active Substance: FUROSEMIDE
     Dosage: 3 DF, QD
     Route: 048
     Dates: start: 20180214, end: 20180221
  19. LASIX [Concomitant]
     Active Substance: FUROSEMIDE
     Dosage: 4 DF, QD
     Route: 048
     Dates: start: 20180222, end: 20180223
  20. LASIX [Concomitant]
     Active Substance: FUROSEMIDE
     Dosage: 4 DF, QD
     Route: 048
     Dates: start: 20180302, end: 20180318
  21. LASIX [Concomitant]
     Active Substance: FUROSEMIDE
     Dosage: 3 DF, QD
     Route: 048
     Dates: start: 20180319, end: 20180406
  22. LASIX [Concomitant]
     Active Substance: FUROSEMIDE
     Route: 048
     Dates: start: 20180202, end: 20180213
  23. PERINDOPRIL ARGININE [Concomitant]
     Active Substance: PERINDOPRIL ARGININE
     Dosage: 0.5 TAB, QD
     Route: 048
     Dates: start: 20171020, end: 20180201
  24. PANTOPRAZOLE SODIUM [Concomitant]
     Active Substance: PANTOPRAZOLE SODIUM
     Dosage: 40 MG, QD
     Route: 048
     Dates: start: 20171020, end: 20171214
  25. PANTOPRAZOLE SODIUM [Concomitant]
     Active Substance: PANTOPRAZOLE SODIUM
     Dosage: 20 MG, QD
     Route: 048
     Dates: start: 20171215, end: 20180524
  26. PANTOPRAZOLE SODIUM [Concomitant]
     Active Substance: PANTOPRAZOLE SODIUM
     Route: 048
     Dates: start: 20171215, end: 20180524
  27. PANTOPRAZOLE SODIUM [Concomitant]
     Active Substance: PANTOPRAZOLE SODIUM
     Route: 048
     Dates: start: 20171020, end: 20171214
  28. UDENAFIL [Concomitant]
     Active Substance: UDENAFIL
     Indication: Pulmonary arterial hypertension
     Dosage: 50 MG, QD
     Route: 048
     Dates: start: 20180209, end: 20180516
  29. LEVOTHYROXINE SODIUM [Concomitant]
     Active Substance: LEVOTHYROXINE SODIUM
     Dosage: 100 MCG, QD
     Route: 048
     Dates: start: 20131017, end: 20180530
  30. LEVOTHYROXINE SODIUM [Concomitant]
     Active Substance: LEVOTHYROXINE SODIUM
     Route: 048
     Dates: start: 20131017, end: 20180530
  31. WARFARIN [Concomitant]
     Active Substance: WARFARIN
     Dosage: 7.5 MG, QD
     Route: 048
     Dates: start: 20140502, end: 20171221
  32. WARFARIN [Concomitant]
     Active Substance: WARFARIN
     Dosage: 5 MG, QD
     Route: 048
     Dates: start: 20171222, end: 20180406
  33. WARFARIN [Concomitant]
     Active Substance: WARFARIN
     Dosage: 2.5 MG, QD
     Route: 048
     Dates: start: 20180407, end: 20180408
  34. WARFARIN [Concomitant]
     Active Substance: WARFARIN
     Dosage: 5 MG, QD
     Route: 048
     Dates: start: 20180409, end: 20180524
  35. CAVID [CALCIUM;COLECALCIFEROL;MAGNESIUM] [Concomitant]
     Dosage: 1 DF, QD
     Route: 048
     Dates: start: 20171124, end: 20180524
  36. DICAMAX [Concomitant]
     Dosage: 1 DF, QD
     Route: 048
     Dates: start: 20170730, end: 20180524
  37. CONTINE [THEOPHYLLINE] [Concomitant]
     Dosage: 600 MG, BID
     Route: 048
     Dates: start: 20180105, end: 20180201
  38. CONTINE [THEOPHYLLINE] [Concomitant]
     Dosage: 600 MG, QD
     Route: 048
     Dates: start: 20180202
  39. BEECOM [Concomitant]
     Dosage: 1 DF, QD
     Route: 048
     Dates: start: 20180119, end: 20180524
  40. REMODULIN [Concomitant]
     Active Substance: TREPROSTINIL
     Indication: Right-to-left cardiac shunt
     Dosage: 4 NG/KG, PER MIN
     Route: 058
     Dates: start: 20180412
  41. REMODULIN [Concomitant]
     Active Substance: TREPROSTINIL
     Dosage: 10 NG/KG, PER MIN
     Route: 058
     Dates: start: 20180414
  42. REMODULIN [Concomitant]
     Active Substance: TREPROSTINIL
     Dosage: 14 NG/KG, PER MIN
     Route: 058
     Dates: start: 20180415
  43. REMODULIN [Concomitant]
     Active Substance: TREPROSTINIL
     Dosage: 24 NG/KG, PER MIN
     Route: 058
     Dates: start: 20180418
  44. REMODULIN [Concomitant]
     Active Substance: TREPROSTINIL
     Dosage: 26 NG/KG, PER MIN
     Route: 058
     Dates: start: 20180419
  45. REMODULIN [Concomitant]
     Active Substance: TREPROSTINIL
     Dosage: 28 NG/KG, PER MIN
     Route: 058
     Dates: start: 20180422
  46. REMODULIN [Concomitant]
     Active Substance: TREPROSTINIL
     Dosage: 30 NG/KG, PER MIN
     Route: 058
     Dates: start: 20180424
  47. REMODULIN [Concomitant]
     Active Substance: TREPROSTINIL
     Dosage: 32 NG/KG, PER MIN
     Route: 058
     Dates: start: 20180425
  48. REMODULIN [Concomitant]
     Active Substance: TREPROSTINIL
     Dosage: 34 NG/KG, PER MIN
     Route: 058
     Dates: start: 20180428, end: 20180530
  49. K CONTIN CONTINUS [Concomitant]
     Dosage: 2 DF, QD
     Route: 048
     Dates: start: 20180105, end: 20180201
  50. K CONTIN CONTINUS [Concomitant]
     Dosage: 1 DF, QD
     Route: 048
     Dates: start: 20180202, end: 20180221
  51. K CONTIN CONTINUS [Concomitant]
     Dosage: 1 DF, QD
     Route: 048
     Dates: start: 20180222, end: 20180225
  52. K CONTIN CONTINUS [Concomitant]
     Dosage: 4 DF, QD
     Route: 048
     Dates: start: 20180301, end: 20180302
  53. K CONTIN CONTINUS [Concomitant]
     Dosage: 1 DF, QD
     Route: 048
     Dates: start: 20180316, end: 20180430
  54. K CONTIN CONTINUS [Concomitant]
     Route: 048
     Dates: start: 20180222, end: 20180225
  55. DIAZEPAM [Concomitant]
     Active Substance: DIAZEPAM
     Dosage: 5 MG, QD
     Dates: start: 20180221, end: 20180221
  56. DIAZEPAM [Concomitant]
     Active Substance: DIAZEPAM
     Dates: start: 20180221, end: 20180221
  57. ENOXAPARIN SODIUM [Concomitant]
     Active Substance: ENOXAPARIN SODIUM
     Dosage: 60 MG, QD
     Route: 058
  58. DIOVAN [Concomitant]
     Active Substance: VALSARTAN
     Dosage: 20 MG, UNK
     Route: 048
     Dates: start: 20180222, end: 20180224
  59. DIOVAN [Concomitant]
     Active Substance: VALSARTAN
     Route: 048
     Dates: start: 20180222, end: 20180224
  60. SUSPEN [PHENOXYMETHYLPENICILLIN POTASSIUM] [Concomitant]
     Dosage: 3 DF, QD
     Route: 048
     Dates: start: 20180222, end: 20180302
  61. SUSPEN [PHENOXYMETHYLPENICILLIN POTASSIUM] [Concomitant]
     Dosage: 1 DF, QD
     Route: 048
     Dates: start: 20180304, end: 20180305
  62. FEBUXOSTAT [Concomitant]
     Active Substance: FEBUXOSTAT
     Dosage: 40 MG, QD
     Route: 048
     Dates: start: 20180316, end: 20180425
  63. SILDENAFIL [Concomitant]
     Active Substance: SILDENAFIL
  64. CIALIS [Concomitant]
     Active Substance: TADALAFIL
     Dosage: 40 MG, UNK
     Route: 048
     Dates: start: 20180417, end: 20180524
  65. AMILO [AMLODIPINE BESILATE] [Concomitant]
     Dosage: 5 MG, QD
     Route: 048
     Dates: start: 20180428, end: 20180502
  66. CALCIUM POLYSTYRENE SULFONATE [Concomitant]
     Active Substance: CALCIUM POLYSTYRENE SULFONATE
     Dosage: 4 DF, UNK
     Route: 048
     Dates: start: 20180501, end: 20180520
  67. SANCUSO [Concomitant]
     Active Substance: GRANISETRON
     Dosage: UNK
     Dates: start: 20180505, end: 20180530
  68. DOPAMIX [Concomitant]
     Dosage: UNK
     Route: 042
     Dates: start: 20180522, end: 20180530
  69. NEXIUM [Concomitant]
     Active Substance: ESOMEPRAZOLE MAGNESIUM
  70. SPIRONOLACTONE [Concomitant]
     Active Substance: SPIRONOLACTONE
     Route: 048
     Dates: start: 20180202, end: 20180304
  71. SPIRONOLACTONE [Concomitant]
     Active Substance: SPIRONOLACTONE
     Route: 048
     Dates: start: 20161019, end: 20180119
  72. SPIRONOLACTONE [Concomitant]
     Active Substance: SPIRONOLACTONE
     Route: 048
     Dates: start: 20180305
  73. SPIRONOLACTONE [Concomitant]
     Active Substance: SPIRONOLACTONE
     Route: 048
     Dates: start: 20180119, end: 20180201
  74. ACETAMINOPHEN [Concomitant]
     Active Substance: ACETAMINOPHEN
     Route: 048
     Dates: start: 20180222, end: 20180302
  75. ACETAMINOPHEN [Concomitant]
     Active Substance: ACETAMINOPHEN
     Route: 048
     Dates: start: 20180304, end: 20180305

REACTIONS (18)
  - Subdural haematoma [Fatal]
  - Pneumonia [Fatal]
  - Haemorrhage intracranial [Fatal]
  - Pulmonary hypertension [Fatal]
  - Cardiac failure [Fatal]
  - Cachexia [Fatal]
  - Somnolence [Fatal]
  - Stupor [Fatal]
  - Hypophagia [Not Recovered/Not Resolved]
  - Epidural haemorrhage [Not Recovered/Not Resolved]
  - Diarrhoea [Unknown]
  - Dyspepsia [Unknown]
  - Headache [Unknown]
  - Upper respiratory tract infection [Unknown]
  - Epistaxis [Recovered/Resolved]
  - Injection site pain [Not Recovered/Not Resolved]
  - Nausea [Unknown]
  - Pain [Unknown]

NARRATIVE: CASE EVENT DATE: 20170101
